FAERS Safety Report 8083086-5 (Version None)
Quarter: 2012Q1

REPORT INFORMATION
  Report Type: 
  Country: None (occurrence: None)
  Receive Date: 20120127
  Receipt Date: 20110318
  Transmission Date: 20120608
  Serious: Yes (Other)
  Sender: FDA-Public Use
  Company Number: US-ABBOTT-11P-163-0708827-00

PATIENT
  Sex: Female

DRUGS (6)
  1. ELAVIN [Concomitant]
     Indication: INSOMNIA
  2. HUMIRA [Suspect]
     Dates: start: 20101227, end: 20101227
  3. IMURAN [Concomitant]
     Indication: CROHN'S DISEASE
  4. HUMIRA [Suspect]
     Indication: CROHN'S DISEASE
     Dates: start: 20101212, end: 20101227
  5. HUMIRA [Suspect]
     Dates: start: 20110301
  6. NEXIUM [Concomitant]
     Indication: CROHN'S DISEASE

REACTIONS (3)
  - ARTHRALGIA [None]
  - INTESTINAL RESECTION [None]
  - INCORRECT DOSE ADMINISTERED [None]
